FAERS Safety Report 7277104-1 (Version None)
Quarter: 2011Q1

REPORT INFORMATION
  Report Type: 
  Country: None (occurrence: None)
  Receive Date: 20110207
  Receipt Date: 20110202
  Transmission Date: 20110831
  Serious: Yes (Death, Hospitalization, Other)
  Sender: FDA-Public Use
  Company Number: FR-PFIZER INC-2010180749

PATIENT
  Age: 57 Year
  Sex: Female
  Weight: 50 kg

DRUGS (7)
  1. ACTISKENAN [Concomitant]
  2. ACETAMINOPHEN [Concomitant]
  3. NEXIUM [Concomitant]
     Indication: GASTRIC DISORDER
     Route: 048
  4. LEVOTHYROX [Concomitant]
     Indication: HYPOTHYROIDISM
     Route: 048
  5. SUTENT [Suspect]
     Indication: SMALL INTESTINE CARCINOMA METASTATIC
     Dosage: 50 MG, DAILY, 4-WEEK CYCLES WITH 2-WEEK DISCONTINUATION
     Route: 048
     Dates: start: 20100401, end: 20101127
  6. MORPHINE SULFATE [Concomitant]
     Indication: PAIN
     Route: 048
  7. LYRICA [Concomitant]
     Indication: PAIN
     Route: 048

REACTIONS (4)
  - HYPOTHYROIDISM [None]
  - GENERAL PHYSICAL HEALTH DETERIORATION [None]
  - PNEUMOPERITONEUM [None]
  - PERITONITIS [None]
